FAERS Safety Report 4513415-8 (Version None)
Quarter: 2004Q4

REPORT INFORMATION
  Report Type: 
  Country: None (occurrence: None)
  Receive Date: 20041130
  Receipt Date: 20040923
  Transmission Date: 20050328
  Serious: No
  Sender: FDA-Public Use
  Company Number: US-BRISTOL-MYERS SQUIBB COMPANY-12710554

PATIENT
  Age: 58 Year
  Sex: Male
  Weight: 91 kg

DRUGS (10)
  1. ERBITUX [Suspect]
     Indication: CARCINOMA
     Dosage: 1ST TREATMENT, 2ND 22-SEP-04 (490 MG)
     Route: 042
     Dates: start: 20040915, end: 20040915
  2. BENADRYL [Concomitant]
     Indication: PREMEDICATION
     Dates: start: 20040915, end: 20040915
  3. ASPIRIN [Concomitant]
     Indication: PREMEDICATION
     Dosage: ^2^ ASPIRIN
     Dates: start: 20040915, end: 20040915
  4. CISPLATIN [Concomitant]
     Dosage: 3 TIMES ON THE 1, 3 + 7TH WEEK OF RADIATION TREATMENTS
  5. RADIATION THERAPY [Concomitant]
     Dosage: DAILY SINCE 13-SEP-04 TO NECK AND THROAT
     Dates: start: 20040913
  6. DEXAMETHASONE [Concomitant]
     Dosage: DAILY FOR 5 DAYS AFTER CISPLATIN
  7. REGLAN [Concomitant]
     Dosage: DURING RADIATION TREATMENTS
  8. COMPAZINE [Concomitant]
     Dosage: 10 MG AS NEEDED EVERY 4 HOURS
  9. ZOFRAN [Concomitant]
     Dosage: 8 MG AS NEEDED
  10. EMEND [Concomitant]

REACTIONS (1)
  - DERMATITIS ACNEIFORM [None]
